FAERS Safety Report 4451663-6 (Version None)
Quarter: 2004Q3

REPORT INFORMATION
  Report Type: 
  Country: None (occurrence: None)
  Receive Date: 20040915
  Receipt Date: 20040816
  Transmission Date: 20050211
  Serious: Yes (Hospitalization)
  Sender: FDA-Public Use
  Company Number: 04-0067PO

PATIENT
  Age: 59 Year
  Sex: Male

DRUGS (5)
  1. MEFENAMIC ACID [Suspect]
     Indication: ARTHRITIS
     Dosage: 500 MG., QD, PO
     Route: 048
  2. VITAMIN B COMPLEX (CONTAINING RIBOFLAVIN, THIAMINE, NICOTINAMIDE) [Concomitant]
  3. CALCIUM [Concomitant]
  4. THYROXINE [Concomitant]
  5. DOXASOSIN [Concomitant]

REACTIONS (7)
  - CELLULITIS [None]
  - HYPERKALAEMIA [None]
  - HYPOVOLAEMIA [None]
  - NAUSEA [None]
  - RENAL IMPAIRMENT [None]
  - SEPSIS [None]
  - VOMITING [None]
